FAERS Safety Report 10225806 (Version 1)
Quarter: 2014Q2

REPORT INFORMATION
  Report Type: Spontaneous
  Country: IT (occurrence: IT)
  Receive Date: 20140609
  Receipt Date: 20140609
  Transmission Date: 20141212
  Serious: Yes (Hospitalization)
  Sender: FDA-Public Use
  Company Number: IT-TARO-2014P1004719

PATIENT
  Age: 19 Year
  Sex: Male

DRUGS (3)
  1. PARACETAMOL (ACETAMINOPHEN) [Suspect]
     Indication: OROPHARYNGEAL PAIN
     Dates: start: 20130602, end: 20130605
  2. OKI (KETOPROFEN LYSINE) [Suspect]
     Indication: OROPHARYNGEAL PAIN
     Dates: start: 20130602, end: 20130605
  3. BETAMETHASONE [Concomitant]
     Dates: start: 20130606

REACTIONS (1)
  - Stevens-Johnson syndrome [None]
